FAERS Safety Report 15853988 (Version 1)
Quarter: 2019Q1

REPORT INFORMATION
  Report Type: Spontaneous
  Country: US (occurrence: US)
  Receive Date: 20190121
  Receipt Date: 20190121
  Transmission Date: 20190417
  Serious: Yes (Life-Threatening, Disabling)
  Sender: FDA-Public Use
  Company Number: None

PATIENT
  Age: 39 Year
  Sex: Female
  Weight: 56.25 kg

DRUGS (1)
  1. GADOBENATE DIMEGLUMINE [Suspect]
     Active Substance: GADOBENATE DIMEGLUMINE
     Indication: UTERINE LEIOMYOMA
     Route: 042
     Dates: start: 20170823, end: 20170823

REACTIONS (8)
  - Musculoskeletal pain [None]
  - Ill-defined disorder [None]
  - Depressed level of consciousness [None]
  - Weight decreased [None]
  - Angiopathy [None]
  - Arthralgia [None]
  - Skin burning sensation [None]
  - Sleep disorder [None]

NARRATIVE: CASE EVENT DATE: 20170823
